FAERS Safety Report 4895564-8 (Version None)
Quarter: 2006Q1

REPORT INFORMATION
  Report Type: 
  Country: None (occurrence: None)
  Receive Date: 20060130
  Receipt Date: 20060117
  Transmission Date: 20060701
  Serious: Yes (Other)
  Sender: FDA-Public Use
  Company Number: US-ROCHE-432726

PATIENT
  Age: 75 Year
  Sex: Male
  Weight: 77.6 kg

DRUGS (23)
  1. BONIVA [Suspect]
     Indication: OSTEOPOROSIS
     Route: 048
     Dates: start: 20051117
  2. CALCIUM GLUCONATE [Concomitant]
     Dates: start: 20051027
  3. TUMS [Concomitant]
     Dates: start: 20051027
  4. PRILOSEC [Concomitant]
     Dates: start: 20051027
  5. ACCUPRIL [Concomitant]
     Dates: start: 20051027
  6. NORVASC [Concomitant]
     Dates: start: 20051027
  7. BENICAR HCT [Concomitant]
     Dates: start: 20051027
  8. TOPROL [Concomitant]
     Dates: start: 20051027
  9. HYTRIN [Concomitant]
     Dates: start: 20051027
  10. DICYCLOMINE HCL INJ [Concomitant]
     Dosage: ADMINISTERED IN THE EVENING
     Dates: start: 20051027
  11. MIRAPEX [Concomitant]
     Dosage: ADMINISTERED IN THE EVENINGS
     Dates: start: 20051027
  12. LEXAPRO [Concomitant]
     Dates: start: 20051027
  13. REMERON [Concomitant]
     Dosage: ADMINISTERED IN THE EVENINGS
     Dates: start: 20051027
  14. CYMBALTA [Concomitant]
     Dates: start: 20051027
  15. FLOMAX [Concomitant]
     Dosage: ADMINISTERED IN THE EVENINGS
     Dates: start: 20051027
  16. TYLENOL E.S. [Concomitant]
     Dosage: ADMINISTERED IN THE EVENINGS
     Dates: start: 20051027
  17. PLETAL [Concomitant]
     Dates: start: 20051027
  18. HYDROCHLOROTHIAZIDE [Concomitant]
     Dates: start: 20051027
  19. M.V.I. [Concomitant]
     Dates: start: 20051027
  20. CHONDROITIN [Concomitant]
     Dates: start: 20051027
  21. KLOR-CON [Concomitant]
     Dates: start: 20051027
  22. TRIAMCINOLONE ACETONIDE [Concomitant]
     Dates: start: 20051027
  23. VIAGRA [Concomitant]
     Dosage: DOSE REPORTED AS OCCASIONALLY.
     Dates: start: 20051027

REACTIONS (3)
  - ERYTHEMA [None]
  - PAIN IN EXTREMITY [None]
  - SWELLING [None]
